FAERS Safety Report 18270947 (Version 2)
Quarter: 2020Q4

REPORT INFORMATION
  Report Type: Report from Study
  Country: PE (occurrence: PE)
  Receive Date: 20200915
  Receipt Date: 20201012
  Transmission Date: 20210113
  Serious: Yes (Death, Hospitalization)
  Sender: FDA-Public Use
  Company Number: PE-SEATTLE GENETICS-2020SGN04076

PATIENT
  Age: 36 Year
  Sex: Female
  Weight: 60 kg

DRUGS (1)
  1. BRENTUXIMAB VEDOTIN [Suspect]
     Active Substance: BRENTUXIMAB VEDOTIN
     Indication: HODGKIN^S DISEASE
     Dosage: 127 MILLIGRAM, Q3WEEKS
     Route: 042
     Dates: start: 20200422

REACTIONS (4)
  - Subcutaneous emphysema [Recovering/Resolving]
  - Swelling face [Recovering/Resolving]
  - Meningitis [Fatal]
  - Urticaria [Recovering/Resolving]

NARRATIVE: CASE EVENT DATE: 20200926
